FAERS Safety Report 9553705 (Version 1)
Quarter: 2013Q3

REPORT INFORMATION
  Report Type: Spontaneous
  Country: US (occurrence: None)
  Receive Date: 20130815
  Receipt Date: 20130815
  Transmission Date: 20140515
  Serious: Yes (Other)
  Sender: FDA-Public Use
  Company Number: ADR-2013-00619

PATIENT
  Sex: Female

DRUGS (3)
  1. LIORESAL INTRATHECAL (BACLOFEN INJECTION 100.0MCG/ML [Suspect]
     Dosage: 60-58MCG/DAY
  2. BUPIVACAINE [Concomitant]
     Indication: PAIN
  3. HYDROMORPHONE [Concomitant]

REACTIONS (2)
  - Intracranial hypotension [None]
  - Headache [None]
